FAERS Safety Report 12383173 (Version 3)
Quarter: 2016Q3

REPORT INFORMATION
  Report Type: Spontaneous
  Country: US (occurrence: US)
  Receive Date: 20160518
  Receipt Date: 20160729
  Transmission Date: 20161109
  Serious: No
  Sender: FDA-Public Use
  Company Number: US-PFIZER INC-2016264096

PATIENT
  Age: 63 Year
  Sex: Female

DRUGS (2)
  1. IBRANCE [Suspect]
     Active Substance: PALBOCICLIB
     Dosage: 100 MG, CYCLIC (1 CAPSULE DAY 1-21 OF EACH 28 DAYS CYCLE (HAD 1 FULL CYCLE))
     Route: 048
     Dates: start: 201605
  2. LETROZOLE. [Suspect]
     Active Substance: LETROZOLE
     Indication: NEOPLASM MALIGNANT
     Dosage: 2.5 MG, DAILY (HAD 1 FULL CYCLE)
     Route: 048
     Dates: start: 201605

REACTIONS (5)
  - White blood cell count decreased [Unknown]
  - Dizziness [Unknown]
  - Vision blurred [Recovered/Resolved]
  - Drug dose omission [Unknown]
  - Memory impairment [Unknown]

NARRATIVE: CASE EVENT DATE: 201605
